FAERS Safety Report 12910909 (Version 3)
Quarter: 2020Q2

REPORT INFORMATION
  Report Type: Spontaneous
  Country: US (occurrence: US)
  Receive Date: 20161104
  Receipt Date: 20200501
  Transmission Date: 20200713
  Serious: Yes (Hospitalization)
  Sender: FDA-Public Use
  Company Number: US-JNJFOC-20161016356

PATIENT
  Age: 58 Year
  Sex: Male
  Weight: 75 kg

DRUGS (4)
  1. PLAVIX [Suspect]
     Active Substance: CLOPIDOGREL BISULFATE
     Indication: CORONARY ARTERY DISEASE
     Route: 048
     Dates: end: 20150113
  2. XARELTO [Suspect]
     Active Substance: RIVAROXABAN
     Indication: PULMONARY EMBOLISM
     Route: 048
     Dates: start: 20140919, end: 20150113
  3. ASPIRIN. [Suspect]
     Active Substance: ASPIRIN
     Indication: CORONARY ARTERY DISEASE
     Route: 048
     Dates: end: 20150113
  4. XARELTO [Suspect]
     Active Substance: RIVAROXABAN
     Route: 048
     Dates: start: 201501, end: 20150129

REACTIONS (3)
  - Splenic haematoma [Recovering/Resolving]
  - Upper gastrointestinal haemorrhage [Recovered/Resolved]
  - Peritoneal haematoma [Recovering/Resolving]

NARRATIVE: CASE EVENT DATE: 20150110
